FAERS Safety Report 25422318 (Version 1)
Quarter: 2025Q2

REPORT INFORMATION
  Report Type: Spontaneous
  Country: US (occurrence: None)
  Receive Date: 20250610
  Receipt Date: 20250610
  Transmission Date: 20250716
  Serious: Yes (Hospitalization)
  Sender: FDA-CTU
  Company Number: None

PATIENT
  Age: 75 Year
  Sex: Male
  Weight: 104 kg

DRUGS (2)
  1. GALANTAMINE HYDROBROMIDE [Suspect]
     Active Substance: GALANTAMINE HYDROBROMIDE
     Indication: Memory impairment
     Dosage: 8.00 MG TWICE A DAY ORAL ?
     Route: 048
     Dates: start: 20241219, end: 20250320
  2. DULOXETINE [Suspect]
     Active Substance: DULOXETINE

REACTIONS (3)
  - Dizziness [None]
  - Syncope [None]
  - Blood pressure systolic decreased [None]

NARRATIVE: CASE EVENT DATE: 20250319
